FAERS Safety Report 7315946-4 (Version None)
Quarter: 2011Q1

REPORT INFORMATION
  Report Type: 
  Country: None (occurrence: None)
  Receive Date: 20110218
  Receipt Date: 20110218
  Transmission Date: 20110831
  Serious: Yes (Hospitalization)
  Sender: FDA-Public Use
  Company Number: None

PATIENT
  Sex: Male
  Weight: 98.8842 kg

DRUGS (5)
  1. SEROQUEL [Suspect]
     Indication: ANXIETY
     Dosage: 100MG QID PO
     Route: 048
     Dates: start: 20101221, end: 20110215
  2. SEROQUEL [Suspect]
     Indication: DEPRESSION
     Dosage: 100MG QID PO
     Route: 048
     Dates: start: 20101221, end: 20110215
  3. PAXIL [Suspect]
     Indication: DEPRESSION
     Dosage: 60MG QD PO
     Route: 048
     Dates: start: 20101221, end: 20110215
  4. PAXIL [Suspect]
     Indication: ANXIETY
     Dosage: 60MG QD PO
     Route: 048
     Dates: start: 20101221, end: 20110215
  5. SUBOXONE [Concomitant]

REACTIONS (2)
  - HALLUCINATION [None]
  - SEROTONIN SYNDROME [None]
